FAERS Safety Report 8596680-X (Version None)
Quarter: 2012Q3

REPORT INFORMATION
  Report Type: 
  Country: None (occurrence: None)
  Receive Date: 20120815
  Receipt Date: 20120813
  Transmission Date: 20120928
  Serious: Yes (Hospitalization, Disabling)
  Sender: FDA-Public Use
  Company Number: BR-ROCHE-1101730

PATIENT
  Sex: Female
  Weight: 57 kg

DRUGS (11)
  1. FINASTERIDE [Concomitant]
     Dosage: BRAND NAME: FINALOP
  2. MABTHERA [Suspect]
     Indication: RHEUMATOID ARTHRITIS
     Route: 042
     Dates: start: 20120322
  3. AZULFIN [Concomitant]
  4. ASPIRIN [Concomitant]
  5. METHOTREXATE [Concomitant]
  6. ENDOFOLIN [Concomitant]
  7. LYRICA [Concomitant]
  8. PREDNISONE TAB [Concomitant]
  9. CELESTONE [Concomitant]
  10. FLUCONAZOLE [Concomitant]
  11. HYDROCORTISONE [Concomitant]
     Indication: PREMEDICATION

REACTIONS (4)
  - IMMOBILE [None]
  - BLINDNESS [None]
  - SPEECH DISORDER [None]
  - VASCULITIS [None]
